FAERS Safety Report 5528922-9 (Version None)
Quarter: 2007Q4

REPORT INFORMATION
  Report Type: 
  Country: None (occurrence: None)
  Receive Date: 20071129
  Receipt Date: 20071116
  Transmission Date: 20080405
  Serious: Yes (Hospitalization, Other)
  Sender: FDA-Public Use
  Company Number: ES-ELI_LILLY_AND_COMPANY-ES200711005209

PATIENT
  Age: 86 Year
  Sex: Female

DRUGS (4)
  1. FORTEO [Suspect]
     Indication: OSTEOPOROSIS
     Dosage: 20 UG, UNKNOWN
     Route: 058
     Dates: start: 20061101
  2. VENLAFAXINE HCL [Concomitant]
     Indication: DEPRESSION
  3. NOLOTIL [Concomitant]
     Indication: PAIN
  4. METHADONE [Concomitant]
     Indication: PAIN
     Dosage: UNK, AS NEEDED

REACTIONS (4)
  - ANOREXIA [None]
  - BACK PAIN [None]
  - INSOMNIA [None]
  - SURGERY [None]
